FAERS Safety Report 9215384 (Version 1)
Quarter: 2013Q2

REPORT INFORMATION
  Report Type: Spontaneous
  Country: US (occurrence: US)
  Receive Date: 20130405
  Receipt Date: 20130405
  Transmission Date: 20140414
  Serious: No
  Sender: FDA-Public Use
  Company Number: US-PFIZER INC-2013107796

PATIENT
  Age: 47 Year
  Sex: Female
  Weight: 102.4 kg

DRUGS (7)
  1. LYRICA [Suspect]
     Indication: ARTHRALGIA
     Dosage: 150 MG, 2X/DAY
     Route: 048
     Dates: start: 2010
  2. LYRICA [Suspect]
     Indication: PAIN IN EXTREMITY
  3. TRAMADOL [Concomitant]
     Dosage: UNK
  4. PAROXETINE [Concomitant]
     Dosage: UNK
  5. CELEBREX [Concomitant]
     Indication: PAIN
     Dosage: UNK
  6. CELEBREX [Concomitant]
     Indication: INFLAMMATION
  7. HYDROCORTISONE [Concomitant]
     Indication: BACK DISORDER
     Dosage: UNK

REACTIONS (3)
  - Pre-existing condition improved [Unknown]
  - Therapeutic response unexpected [Unknown]
  - Off label use [Unknown]
